FAERS Safety Report 24646806 (Version 2)
Quarter: 2024Q4

REPORT INFORMATION
  Report Type: Spontaneous
  Country: TR (occurrence: TR)
  Receive Date: 20241121
  Receipt Date: 20241205
  Transmission Date: 20250115
  Serious: Yes (Life-Threatening, Other)
  Sender: PFIZER
  Company Number: TR-PFIZER INC-202400304211

PATIENT
  Age: 52 Year
  Sex: Male

DRUGS (8)
  1. METHYLPREDNISOLONE ACETATE [Suspect]
     Active Substance: METHYLPREDNISOLONE ACETATE
     Indication: Anaphylactic reaction
     Dosage: 16 MG, 1X/DAY
  2. METHYLPREDNISOLONE ACETATE [Suspect]
     Active Substance: METHYLPREDNISOLONE ACETATE
     Indication: Urticaria chronic
  3. CETIRIZINE [Suspect]
     Active Substance: CETIRIZINE HYDROCHLORIDE
     Indication: Anaphylactic reaction
     Dosage: 10 MG
  4. CETIRIZINE [Suspect]
     Active Substance: CETIRIZINE HYDROCHLORIDE
     Indication: Urticaria chronic
     Dosage: UNK, 2X/DAY
  5. FEXOFENADINE [Suspect]
     Active Substance: FEXOFENADINE HYDROCHLORIDE
     Indication: Anaphylactic reaction
     Dosage: 180 MG, 2X/DAY
  6. FEXOFENADINE [Suspect]
     Active Substance: FEXOFENADINE HYDROCHLORIDE
     Indication: Urticaria chronic
     Dosage: UNK
  7. KETOTIFEN [Suspect]
     Active Substance: KETOTIFEN
     Indication: Anaphylactic reaction
     Dosage: 2 MG, 1X/DAY
  8. KETOTIFEN [Suspect]
     Active Substance: KETOTIFEN
     Indication: Urticaria chronic

REACTIONS (1)
  - Drug ineffective [Unknown]
